FAERS Safety Report 9711160 (Version 2)
Quarter: 2013Q4

REPORT INFORMATION
  Report Type: Spontaneous
  Country: US (occurrence: US)
  Receive Date: 20131126
  Receipt Date: 20131127
  Transmission Date: 20140711
  Serious: Yes (Hospitalization)
  Sender: FDA-Public Use
  Company Number: US-ABBVIE-13P-163-1171108-00

PATIENT
  Age: 56 Year
  Sex: Male

DRUGS (2)
  1. HUMIRA [Suspect]
     Indication: PSORIASIS
     Dates: start: 201309, end: 201309
  2. HUMIRA [Suspect]
     Dates: start: 201309, end: 201309

REACTIONS (3)
  - Shock [Unknown]
  - Blood glucose decreased [Unknown]
  - Blood glucose increased [Unknown]
